FAERS Safety Report 18011807 (Version 3)
Quarter: 2020Q3

REPORT INFORMATION
  Report Type: Spontaneous
  Country: JP (occurrence: JP)
  Receive Date: 20200713
  Receipt Date: 20200826
  Transmission Date: 20201103
  Serious: Yes (Hospitalization, Other)
  Sender: FDA-Public Use
  Company Number: JP-AMGEN-JPNSP2020107907

PATIENT
  Age: 66 Year
  Sex: Male

DRUGS (5)
  1. BLINCYTO [Suspect]
     Active Substance: BLINATUMOMAB
     Indication: ACUTE LYMPHOCYTIC LEUKAEMIA RECURRENT
     Dosage: UNK
     Route: 041
     Dates: start: 20200518, end: 2020
  2. BLINCYTO [Suspect]
     Active Substance: BLINATUMOMAB
     Indication: ACUTE LYMPHOCYTIC LEUKAEMIA
     Dosage: 28 MICROGRAM, QD
     Route: 041
     Dates: start: 20200629, end: 202007
  3. BLINCYTO [Suspect]
     Active Substance: BLINATUMOMAB
     Dosage: 28 MICROGRAM
     Route: 042
     Dates: start: 20200715, end: 2020
  4. PREDONINE [PREDNISOLONE ACETATE] [Concomitant]
     Active Substance: PREDNISOLONE ACETATE
     Dosage: 20 MILLIGRAM, QD
  5. BLINCYTO [Suspect]
     Active Substance: BLINATUMOMAB
     Dosage: DOSE WAS ADJUSTED TO BE APPROXIMATELY 9 MICROGRAM DAY, QD
     Route: 041
     Dates: start: 202007

REACTIONS (5)
  - Hypoxia [Recovering/Resolving]
  - Hypoglobulinaemia [Recovering/Resolving]
  - Wrong technique in product usage process [Unknown]
  - Pneumocystis jirovecii pneumonia [Recovering/Resolving]
  - Encephalopathy [Recovering/Resolving]

NARRATIVE: CASE EVENT DATE: 20200625
